FAERS Safety Report 13912924 (Version 1)
Quarter: 2017Q3

REPORT INFORMATION
  Report Type: Spontaneous
  Country: US (occurrence: US)
  Receive Date: 20170828
  Receipt Date: 20170828
  Transmission Date: 20171127
  Serious: No
  Sender: FDA-Public Use
  Company Number: US-SUNOVION-2017SUN003639

PATIENT
  Sex: Male

DRUGS (2)
  1. ALBUTEROL. [Suspect]
     Active Substance: ALBUTEROL
  2. BROVANA [Suspect]
     Active Substance: ARFORMOTEROL TARTRATE
     Dosage: B
     Route: 055

REACTIONS (1)
  - Dyspnoea [Unknown]
